FAERS Safety Report 18059477 (Version 9)
Quarter: 2024Q1

REPORT INFORMATION
  Report Type: Spontaneous
  Country: US (occurrence: US)
  Receive Date: 20200723
  Receipt Date: 20240307
  Transmission Date: 20240410
  Serious: Yes (Other)
  Sender: FDA-Public Use
  Company Number: US-PFIZER INC-2020280005

PATIENT
  Age: 75 Year
  Sex: Female
  Weight: 61.7 kg

DRUGS (7)
  1. IBRANCE [Suspect]
     Active Substance: PALBOCICLIB
     Indication: Breast cancer metastatic
     Dosage: UNK
     Dates: start: 20200424
  2. IBRANCE [Suspect]
     Active Substance: PALBOCICLIB
     Dosage: 125 MG
     Dates: start: 20200601
  3. IBRANCE [Suspect]
     Active Substance: PALBOCICLIB
     Dosage: UNK
     Dates: end: 20200612
  4. IBRANCE [Suspect]
     Active Substance: PALBOCICLIB
     Dosage: DAILY 2 WEEKS ON 2 WEEKS OFF
     Dates: start: 20200622
  5. IBRANCE [Suspect]
     Active Substance: PALBOCICLIB
     Dosage: 1 TABLET A DAY (DAILY FOR 21 DAYS, THEN 1 WEEK OFF)
     Route: 048
     Dates: start: 20200726
  6. IBRANCE [Suspect]
     Active Substance: PALBOCICLIB
     Dosage: TAKE 1 TABLET (75 MG TOTAL) DAILY. FOR 3 WEEKS THEN 1 WEEK OFF AND REPEAT/ 21 DAYS THEN 7 DAYS OFF
     Route: 048
  7. LETROZOLE [Concomitant]
     Active Substance: LETROZOLE
     Indication: Breast cancer metastatic
     Dosage: 2.5 MG, DAILY
     Dates: start: 20200424

REACTIONS (7)
  - Leukopenia [Unknown]
  - Neutropenia [Unknown]
  - Coronary artery disease [Unknown]
  - Product use issue [Unknown]
  - Full blood count decreased [Unknown]
  - Arthralgia [Unknown]
  - Dyspnoea [Unknown]
